FAERS Safety Report 9411952 (Version 1)
Quarter: 2013Q3

REPORT INFORMATION
  Report Type: Spontaneous
  Country: US (occurrence: None)
  Receive Date: 20130719
  Receipt Date: 20130719
  Transmission Date: 20140515
  Serious: Yes (Other)
  Sender: FDA-Public Use
  Company Number: None

PATIENT
  Age: 35 Year
  Sex: Female
  Weight: 58.06 kg

DRUGS (1)
  1. GIANVI [Suspect]
     Indication: MENSTRUAL DISORDER
     Dosage: 1 DOSE DAILY PO
     Route: 048
     Dates: start: 20070101, end: 20130718

REACTIONS (2)
  - Mood swings [None]
  - Menorrhagia [None]
